FAERS Safety Report 4401661-3 (Version None)
Quarter: 2004Q3

REPORT INFORMATION
  Report Type: 
  Country: None (occurrence: None)
  Receive Date: 20040719
  Receipt Date: 20040706
  Transmission Date: 20050211
  Serious: Yes (Other)
  Sender: FDA-Public Use
  Company Number: US-ROCHE-373605

PATIENT
  Age: 44 Year
  Sex: Male
  Weight: 81.6 kg

DRUGS (5)
  1. FUZEON [Suspect]
     Route: 058
     Dates: start: 20040628, end: 20040705
  2. KEPPRA [Concomitant]
  3. NEURONTIN [Concomitant]
     Route: 048
  4. INHALER NOS [Concomitant]
     Indication: ASTHMA
     Route: 055
  5. DRUG UNKNOWN [Concomitant]
     Dosage: DRUG NAME REPORTED AS: VIRIMMUNE.

REACTIONS (7)
  - EPILEPTIC AURA [None]
  - EYE ROLLING [None]
  - FLUSHING [None]
  - HAEMATOMA [None]
  - PYREXIA [None]
  - RASH GENERALISED [None]
  - RASH PRURITIC [None]
